FAERS Safety Report 13098387 (Version 2)
Quarter: 2017Q1

REPORT INFORMATION
  Report Type: Spontaneous
  Country: RU (occurrence: RU)
  Receive Date: 20170109
  Receipt Date: 20170125
  Transmission Date: 20170428
  Serious: Yes (Other)
  Sender: FDA-Public Use
  Company Number: RU-SA-2017SA002057

PATIENT
  Age: 78 Year
  Sex: Female
  Weight: 65 kg

DRUGS (3)
  1. DIPROSPAN [Concomitant]
     Active Substance: BETAMETHASONE DIPROPIONATE\BETAMETHASONE SODIUM PHOSPHATE
     Dosage: DOSE- 2MG+5MG/ML.?START DATE:DURING THE LAST 3 WEEK
     Route: 014
  2. ARAVA [Suspect]
     Active Substance: LEFLUNOMIDE
     Indication: RHEUMATOID ARTHRITIS
     Dosage: START DATE ABOUT 2 MONTHS AGO
     Route: 048
  3. TROXEVASIN [Concomitant]
     Route: 048

REACTIONS (2)
  - Bradycardia [Recovered/Resolved]
  - Blood pressure increased [Recovered/Resolved]
